FAERS Safety Report 10861113 (Version 1)
Quarter: 2015Q1

REPORT INFORMATION
  Report Type: Spontaneous
  Country: US (occurrence: None)
  Receive Date: 20150218
  Receipt Date: 20150218
  Transmission Date: 20150721
  Serious: No
  Sender: FDA-Public Use
  Company Number: None

PATIENT
  Age: 25 Year
  Sex: Female
  Weight: 45.36 kg

DRUGS (1)
  1. VANCOMYCIN 1000MG/20ML HOSPIRA [Suspect]
     Active Substance: VANCOMYCIN
     Indication: STAPHYLOCOCCAL INFECTION
     Route: 042
     Dates: start: 20150217, end: 20150217

REACTIONS (2)
  - Product colour issue [None]
  - Product reconstitution issue [None]

NARRATIVE: CASE EVENT DATE: 20150217
